FAERS Safety Report 7492495-4 (Version None)
Quarter: 2011Q2

REPORT INFORMATION
  Report Type: 
  Country: None (occurrence: None)
  Receive Date: 20110519
  Receipt Date: 20110512
  Transmission Date: 20111010
  Serious: Yes (Hospitalization, Other)
  Sender: FDA-Public Use
  Company Number: US-PFIZER INC-2011102296

PATIENT
  Sex: Female
  Weight: 89 kg

DRUGS (10)
  1. GEMFIBROZIL [Concomitant]
     Indication: BLOOD CHOLESTEROL INCREASED
     Dosage: 1200 MG, (600 MG, 1 IN 12 HR)
     Route: 048
  2. NEXIUM [Concomitant]
     Indication: ABDOMINAL DISCOMFORT
     Dosage: 80 MG, (40 MG, 1 IN 12 HR)
     Route: 048
  3. HUMIRA [Suspect]
     Indication: CROHN'S DISEASE
     Dosage: 40 MG/ 0.8 ML PEN, 1 IN 2 WEEK
     Route: 058
     Dates: start: 20101016
  4. WARFARIN SODIUM [Concomitant]
     Indication: ANTICOAGULANT THERAPY
     Dosage: 1 MG, 1X/DAY
     Route: 048
     Dates: start: 20110201
  5. CYANOCOBALAMIN [Concomitant]
     Dosage: UNK
  6. METOPROLOL [Concomitant]
     Indication: HYPERTENSION
     Dosage: 100 MG (50 MG, 1 IN 12 HR)
     Route: 048
  7. LEVOTHYROXINE [Concomitant]
     Indication: HYPOTHYROIDISM
     Dosage: 137 MCG, 1 IN 1 DAY
     Route: 048
  8. PREMARIN [Suspect]
     Indication: HORMONE REPLACEMENT THERAPY
     Dosage: 0.625 MG, 1 IN 12 HR
     Route: 048
     Dates: start: 19890101, end: 20110201
  9. SIMVASTATIN [Concomitant]
     Indication: BLOOD CHOLESTEROL INCREASED
     Dosage: 40 MG, (1 IN 1 DAY)
     Route: 048
  10. VERAPAMIL [Concomitant]
     Indication: HYPERTENSION
     Dosage: 240 MG, 1 IN 1 DAY
     Route: 048

REACTIONS (6)
  - PULMONARY EMBOLISM [None]
  - OEDEMA PERIPHERAL [None]
  - RECTAL HAEMORRHAGE [None]
  - FAECES DISCOLOURED [None]
  - DEEP VEIN THROMBOSIS [None]
  - DYSPNOEA [None]
